FAERS Safety Report 19055701 (Version 2)
Quarter: 2021Q2

REPORT INFORMATION
  Report Type: Spontaneous
  Country: US (occurrence: US)
  Receive Date: 20210325
  Receipt Date: 20210416
  Transmission Date: 20210717
  Serious: No
  Sender: FDA-Public Use
  Company Number: US-AMGEN-USASP2021043827

PATIENT
  Age: 69 Year
  Sex: Female
  Weight: 82.54 kg

DRUGS (1)
  1. PROLIA [Suspect]
     Active Substance: DENOSUMAB
     Indication: OSTEOPOROSIS POSTMENOPAUSAL
     Dosage: 60 MILLIGRAM, Q6MO
     Route: 065
     Dates: start: 20200824

REACTIONS (2)
  - Incorrect dose administered by device [Unknown]
  - Accidental exposure to product [Unknown]

NARRATIVE: CASE EVENT DATE: 20210319
